FAERS Safety Report 20858029 (Version 1)
Quarter: 2022Q2

REPORT INFORMATION
  Report Type: Spontaneous
  Country: GB (occurrence: GB)
  Receive Date: 20220521
  Receipt Date: 20220521
  Transmission Date: 20220721
  Serious: Yes (Life-Threatening, Hospitalization)
  Sender: FDA-Public Use
  Company Number: None

PATIENT
  Age: 45 Year
  Sex: Male
  Weight: 84 kg

DRUGS (4)
  1. ATORVASTATIN [Suspect]
     Active Substance: ATORVASTATIN
  2. ASPIRIN [Suspect]
     Active Substance: ASPIRIN
  3. ASTRAZENECA COVID-19 VACCINE [Suspect]
     Active Substance: AZD-1222
     Dosage: DOSE 3
     Dates: start: 20211204
  4. METFORMIN, [Concomitant]
     Indication: Type 2 diabetes mellitus
     Dates: start: 2016

REACTIONS (7)
  - Thrombosis [Recovered/Resolved]
  - COVID-19 [Recovered/Resolved]
  - Stent placement [Recovered/Resolved]
  - Back pain [Recovered/Resolved]
  - Myocardial infarction [Recovered/Resolved with Sequelae]
  - Fatigue [Unknown]
  - Dyspnoea [Unknown]

NARRATIVE: CASE EVENT DATE: 20220105
